FAERS Safety Report 8492099-0 (Version None)
Quarter: 2012Q2

REPORT INFORMATION
  Report Type: 
  Country: None (occurrence: None)
  Receive Date: 20120627
  Receipt Date: 20120611
  Transmission Date: 20120825
  Serious: Yes (Hospitalization, Other)
  Sender: FDA-Public Use
  Company Number: NSR_00577_2012

PATIENT
  Age: 34 Year
  Sex: Male

DRUGS (4)
  1. FLUOXETINE HCL [Suspect]
     Indication: POST-TRAUMATIC STRESS DISORDER
     Dosage: (20 MG, [PER DAY]), (60 MG [PER DAY])
     Dates: start: 20060101, end: 20110101
  2. FLUOXETINE HCL [Suspect]
     Indication: DEPRESSION
     Dosage: (20 MG, [PER DAY]), (60 MG [PER DAY])
     Dates: start: 20060101, end: 20110101
  3. FLUOXETINE HCL [Suspect]
     Indication: POST-TRAUMATIC STRESS DISORDER
     Dosage: (20 MG, [PER DAY]), (60 MG [PER DAY])
     Dates: start: 20110101
  4. FLUOXETINE HCL [Suspect]
     Indication: DEPRESSION
     Dosage: (20 MG, [PER DAY]), (60 MG [PER DAY])
     Dates: start: 20110101

REACTIONS (7)
  - BRUXISM [None]
  - TEMPOROMANDIBULAR JOINT SYNDROME [None]
  - HOMICIDAL IDEATION [None]
  - HEADACHE [None]
  - FEELING ABNORMAL [None]
  - SUICIDAL IDEATION [None]
  - PARTNER STRESS [None]
